FAERS Safety Report 4535225-8 (Version None)
Quarter: 2004Q4

REPORT INFORMATION
  Report Type: 
  Country: None (occurrence: None)
  Receive Date: 20041214
  Receipt Date: 20041022
  Transmission Date: 20050328
  Serious: No
  Sender: FDA-Public Use
  Company Number: 2004244090US

PATIENT
  Sex: Female

DRUGS (2)
  1. BEXTRA [Suspect]
     Dosage: QD
     Dates: start: 20040101
  2. KLONOPIN [Concomitant]

REACTIONS (1)
  - GASTRIC DISORDER [None]
